FAERS Safety Report 9233387 (Version 1)
Quarter: 2013Q2

REPORT INFORMATION
  Report Type: Spontaneous
  Country: US (occurrence: None)
  Receive Date: 20130415
  Receipt Date: 20130415
  Transmission Date: 20140414
  Serious: Yes (Life-Threatening, Hospitalization, Other)
  Sender: FDA-Public Use
  Company Number: None

PATIENT
  Age: 5 Month
  Sex: Female
  Weight: 6.8 kg

DRUGS (1)
  1. HYLANDS TEETHING TABLETS [Suspect]
     Indication: TEETHING
     Dosage: 2 ON SATURDAY, 3 SUNDAY, 3 MON
     Dates: start: 20130406, end: 20130408

REACTIONS (13)
  - Heart rate increased [None]
  - Unresponsive to stimuli [None]
  - Hypotonia [None]
  - Feeling abnormal [None]
  - Mydriasis [None]
  - Confusional state [None]
  - Feeling abnormal [None]
  - Anuria [None]
  - Hypophagia [None]
  - Diarrhoea [None]
  - Haematemesis [None]
  - Lethargy [None]
  - Gastrointestinal disorder [None]
